FAERS Safety Report 13658146 (Version 1)
Quarter: 2017Q2

REPORT INFORMATION
  Report Type: Spontaneous
  Country: FR (occurrence: FR)
  Receive Date: 20170616
  Receipt Date: 20170616
  Transmission Date: 20170830
  Serious: Yes (Hospitalization)
  Sender: FDA-Public Use
  Company Number: FR-AMGEN-FRASP2017091613

PATIENT
  Age: 73 Year
  Sex: Male

DRUGS (9)
  1. ENBREL [Suspect]
     Active Substance: ETANERCEPT
     Indication: ANKYLOSING SPONDYLITIS
     Dosage: 50 MG, WEEKLY
     Route: 058
     Dates: start: 20121018, end: 20160920
  2. DOLIPRANE [Concomitant]
     Active Substance: ACETAMINOPHEN
  3. RAMIPRIL. [Concomitant]
     Active Substance: RAMIPRIL
  4. CETIRIZINE [Concomitant]
     Active Substance: CETIRIZINE HYDROCHLORIDE
  5. SIMVASTATIN. [Concomitant]
     Active Substance: SIMVASTATIN
  6. PREVISCAN [Concomitant]
     Active Substance: FLUINDIONE
  7. DILTIAZEM. [Concomitant]
     Active Substance: DILTIAZEM
  8. FLECAINE LP [Concomitant]
     Active Substance: FLECAINIDE
  9. SYMBICORT [Concomitant]
     Active Substance: BUDESONIDE\FORMOTEROL FUMARATE DIHYDRATE

REACTIONS (1)
  - Adenocarcinoma of colon [Unknown]

NARRATIVE: CASE EVENT DATE: 20160920
